FAERS Safety Report 14003754 (Version 1)
Quarter: 2017Q3

REPORT INFORMATION
  Report Type: Spontaneous
  Country: US (occurrence: US)
  Receive Date: 20170922
  Receipt Date: 20170922
  Transmission Date: 20171128
  Serious: No
  Sender: FDA-Public Use
  Company Number: US-JNJFOC-20170716803

PATIENT
  Sex: Female

DRUGS (2)
  1. SANDOZ FENTANYL [Suspect]
     Active Substance: FENTANYL
     Indication: PRODUCT USED FOR UNKNOWN INDICATION
     Dosage: (25 MCG AND 50 MCG)
     Route: 065
  2. SANDOZ FENTANYL [Suspect]
     Active Substance: FENTANYL
     Indication: PRODUCT USED FOR UNKNOWN INDICATION
     Dosage: (25 MCG AND 12 MCG)
     Route: 065

REACTIONS (1)
  - Therapy change [Unknown]
